FAERS Safety Report 17670814 (Version 1)
Quarter: 2020Q2

REPORT INFORMATION
  Report Type: Spontaneous
  Country: FR (occurrence: FR)
  Receive Date: 20200415
  Receipt Date: 20200415
  Transmission Date: 20200713
  Serious: Yes (Life-Threatening, Hospitalization)
  Sender: FDA-Public Use
  Company Number: FR-MYLANLABS-2020M1037396

PATIENT
  Age: 95 Year
  Sex: Male

DRUGS (4)
  1. CEFOTAXIME [Suspect]
     Active Substance: CEFOTAXIME SODIUM
     Indication: INFECTION
     Dosage: 3 DOSAGE FORM, QD
     Route: 041
     Dates: start: 202002, end: 20200214
  2. METRONIDAZOLE BAXTER [Suspect]
     Active Substance: METRONIDAZOLE
     Indication: INFECTION
     Dosage: 3 DOSAGE FORM, QD
     Route: 041
     Dates: start: 202002, end: 20200214
  3. AMOXICILINA + ACIDO CLAVULA. SANDOZ/02043401/ [Suspect]
     Active Substance: AMOXICILLIN\CLAVULANIC ACID
     Indication: INFECTION
     Dosage: 3 DOSAGE FORM, QD
     Route: 048
     Dates: start: 20200214, end: 20200216
  4. CLOZAPINE. [Suspect]
     Active Substance: CLOZAPINE
     Indication: PRODUCT USED FOR UNKNOWN INDICATION
     Dosage: 100 MILLIGRAM, QD
     Route: 048
     Dates: start: 20200206, end: 20200206

REACTIONS (2)
  - Product administration error [Unknown]
  - Meningitis aseptic [Recovering/Resolving]

NARRATIVE: CASE EVENT DATE: 20200217
